FAERS Safety Report 9704401 (Version 1)
Quarter: 2013Q4

REPORT INFORMATION
  Report Type: Spontaneous
  Country: US (occurrence: None)
  Receive Date: 20131121
  Receipt Date: 20131121
  Transmission Date: 20140711
  Serious: No
  Sender: FDA-Public Use
  Company Number: None

PATIENT
  Age: 39 Year
  Sex: Female

DRUGS (1)
  1. MIRENA [Suspect]

REACTIONS (7)
  - Hot flush [None]
  - Mood swings [None]
  - Fatigue [None]
  - Palpitations [None]
  - Hypertension [None]
  - Decreased appetite [None]
  - Haemorrhage [None]
